FAERS Safety Report 6666110-3 (Version None)
Quarter: 2010Q1

REPORT INFORMATION
  Report Type: 
  Country: None (occurrence: None)
  Receive Date: 20100330
  Receipt Date: 20100323
  Transmission Date: 20100710
  Serious: Yes (Other)
  Sender: FDA-Public Use
  Company Number: 1022556-2009-00025

PATIENT
  Sex: Male

DRUGS (1)
  1. ICY HOT ARM, NECK, LEG PATCH [Suspect]
     Indication: JOINT SPRAIN
     Dosage: 1X, TOPICAL
     Route: 061
     Dates: start: 20080220

REACTIONS (5)
  - APPLICATION SITE BURN [None]
  - APPLICATION SITE IRRITATION [None]
  - CEREBROVASCULAR ACCIDENT [None]
  - LOCALISED INFECTION [None]
  - TOE AMPUTATION [None]
